FAERS Safety Report 11364728 (Version 1)
Quarter: 2015Q3

REPORT INFORMATION
  Report Type: Spontaneous
  Country: US (occurrence: None)
  Receive Date: 20150810
  Receipt Date: 20150810
  Transmission Date: 20151125
  Serious: Yes (Disabling)
  Sender: FDA-Public Use
  Company Number: None

PATIENT
  Age: 22 Year
  Sex: Male
  Weight: 75 kg

DRUGS (2)
  1. CLONAZEPAM. [Concomitant]
     Active Substance: CLONAZEPAM
  2. CITALOPRAM 20 MG LIBBS [Suspect]
     Active Substance: CITALOPRAM HYDROBROMIDE
     Indication: PANIC DISORDER
     Dosage: 2 PILLS
     Route: 048
     Dates: start: 20080708, end: 20150210

REACTIONS (5)
  - Erectile dysfunction [None]
  - Libido decreased [None]
  - Sexual dysfunction [None]
  - Genital hypoaesthesia [None]
  - Orgasmic sensation decreased [None]
